FAERS Safety Report 19984929 (Version 3)
Quarter: 2021Q4

REPORT INFORMATION
  Report Type: Spontaneous
  Country: CN (occurrence: CN)
  Receive Date: 20211022
  Receipt Date: 20211109
  Transmission Date: 20220303
  Serious: Yes (Hospitalization)
  Sender: FDA-Public Use
  Company Number: CN-BLUEPRINT MEDICINES CORPORATION-SO-CN-2021-001930

PATIENT
  Age: 59 Year
  Sex: Female

DRUGS (3)
  1. GAVRETO [Suspect]
     Active Substance: PRALSETINIB
     Indication: Lung neoplasm malignant
     Route: 048
     Dates: start: 202107, end: 202109
  2. GAVRETO [Suspect]
     Active Substance: PRALSETINIB
     Route: 048
     Dates: start: 202109, end: 202109
  3. GAVRETO [Suspect]
     Active Substance: PRALSETINIB
     Route: 048
     Dates: start: 2021

REACTIONS (9)
  - Interstitial lung disease [Recovering/Resolving]
  - Nasopharyngitis [Recovering/Resolving]
  - Infection [Recovering/Resolving]
  - Headache [Not Recovered/Not Resolved]
  - Hypogeusia [Recovering/Resolving]
  - Dizziness [Recovering/Resolving]
  - Asthenia [Not Recovered/Not Resolved]
  - Dry mouth [Recovering/Resolving]
  - Blood pressure increased [Recovering/Resolving]

NARRATIVE: CASE EVENT DATE: 20210801
